FAERS Safety Report 18924232 (Version 1)
Quarter: 2021Q1

REPORT INFORMATION
  Report Type: Spontaneous
  Country: US (occurrence: US)
  Receive Date: 20210222
  Receipt Date: 20210222
  Transmission Date: 20210420
  Serious: Yes (Hospitalization, Other)
  Sender: FDA-Public Use
  Company Number: US-GLAXOSMITHKLINE-US2021GSK043330

PATIENT
  Age: 55 Year
  Sex: Female

DRUGS (2)
  1. BELIMUMAB [Suspect]
     Active Substance: BELIMUMAB
     Indication: SYSTEMIC LUPUS ERYTHEMATOSUS
     Dosage: UNK (MONTHLY)
     Route: 042
  2. METHOTREXATE. [Suspect]
     Active Substance: METHOTREXATE
     Indication: SYSTEMIC LUPUS ERYTHEMATOSUS
     Dosage: 15 MG, WE

REACTIONS (13)
  - Pyrexia [Unknown]
  - Transaminases increased [Unknown]
  - Cytomegalovirus infection reactivation [Unknown]
  - Enteritis [Unknown]
  - Hyperkalaemia [Unknown]
  - Nausea [Unknown]
  - Vomiting [Unknown]
  - Tachycardia [Unknown]
  - Chills [Unknown]
  - Hepatitis [Unknown]
  - Myalgia [Unknown]
  - Diarrhoea [Unknown]
  - Lymphadenopathy [Unknown]
